FAERS Safety Report 8137351-3 (Version None)
Quarter: 2012Q1

REPORT INFORMATION
  Report Type: 
  Country: None (occurrence: None)
  Receive Date: 20120103
  Receipt Date: 20111014
  Transmission Date: 20120608
  Serious: No
  Sender: FDA-Public Use
  Company Number: AE-2011-002311

PATIENT
  Age: 35 Year
  Sex: Female
  Weight: 52.6173 kg

DRUGS (3)
  1. PEGASYS [Concomitant]
  2. RIBASPHERE (RIVAVIRIN) [Concomitant]
  3. INCIVEK [Suspect]
     Dosage: 2250 MG (750 MG, 3 IN 1 D), ORAL
     Route: 048

REACTIONS (5)
  - DIARRHOEA [None]
  - PHARYNGITIS STREPTOCOCCAL [None]
  - ANORECTAL DISORDER [None]
  - NAUSEA [None]
  - RASH [None]
